FAERS Safety Report 20504686 (Version 1)
Quarter: 2022Q1

REPORT INFORMATION
  Report Type: Spontaneous
  Country: GB (occurrence: GB)
  Receive Date: 20220223
  Receipt Date: 20220223
  Transmission Date: 20220424
  Serious: Yes (Other)
  Sender: FDA-Public Use
  Company Number: GB-TEVA-2022-GB-2009115

PATIENT
  Age: 42 Year
  Sex: Female

DRUGS (2)
  1. PREDNISOLONE [Suspect]
     Active Substance: PREDNISOLONE
     Indication: Peripheral sensory neuropathy
     Dosage: 60 MILLIGRAM DAILY;
     Route: 065
  2. ADALIMUMAB [Suspect]
     Active Substance: ADALIMUMAB
     Indication: Seronegative arthritis
     Route: 065
     Dates: start: 2018

REACTIONS (4)
  - Steroid diabetes [Unknown]
  - Peripheral sensory neuropathy [Recovering/Resolving]
  - Vasculitis [Recovering/Resolving]
  - Rebound effect [Unknown]
